FAERS Safety Report 20767227 (Version 4)
Quarter: 2024Q4

REPORT INFORMATION
  Report Type: Report from Study
  Country: US (occurrence: US)
  Receive Date: 20220429
  Receipt Date: 20241112
  Transmission Date: 20250114
  Serious: Yes (Hospitalization)
  Sender: ROCHE
  Company Number: US-ROCHE-3071696

PATIENT
  Age: 70 Year
  Sex: Male
  Weight: 83.51 kg

DRUGS (11)
  1. OCREVUS [Suspect]
     Active Substance: OCRELIZUMAB
     Indication: Secondary progressive multiple sclerosis
     Dosage: INJECT INTO THE VEIN ONCE FOR 1 DOSE
     Route: 042
     Dates: start: 20180206
  2. METFORMIN [Concomitant]
     Active Substance: METFORMIN HYDROCHLORIDE
  3. ACETAMINOPHEN [Concomitant]
     Active Substance: ACETAMINOPHEN
  4. AMOXICILLIN [Concomitant]
     Active Substance: AMOXICILLIN
  5. ASPIRIN [Concomitant]
     Active Substance: ASPIRIN
  6. ATENOLOL [Concomitant]
     Active Substance: ATENOLOL
  7. ATORVASTATIN [Concomitant]
     Active Substance: ATORVASTATIN
  8. BACLOFEN [Concomitant]
     Active Substance: BACLOFEN
  9. CHOLECALCIFEROL [Concomitant]
     Active Substance: CHOLECALCIFEROL
  10. SITAGLIPTIN [Concomitant]
     Active Substance: SITAGLIPTIN
  11. IBUPROFEN [Concomitant]
     Active Substance: IBUPROFEN

REACTIONS (4)
  - Localised infection [Recovered/Resolved]
  - Cellulitis [Unknown]
  - Pain [Recovered/Resolved]
  - Urinary tract infection [Recovered/Resolved]

NARRATIVE: CASE EVENT DATE: 20220311
